FAERS Safety Report 23236524 (Version 2)
Quarter: 2023Q4

REPORT INFORMATION
  Report Type: Report from Study
  Country: MX (occurrence: MX)
  Receive Date: 20231128
  Receipt Date: 20231212
  Transmission Date: 20240110
  Serious: Yes (Hospitalization, Other)
  Sender: FDA-Public Use
  Company Number: MX-002147023-NVSC2023MX251127

PATIENT
  Age: 76 Year
  Sex: Male
  Weight: 74 kg

DRUGS (12)
  1. EXFORGE HCT [Suspect]
     Active Substance: AMLODIPINE BESYLATE\HYDROCHLOROTHIAZIDE\VALSARTAN
     Indication: Hypertension
     Dosage: 2 DOSAGE FORM, QD, ((10/320/ 25 MG)), HE DID NOT REMEMBER THE STOP DATE
     Route: 048
     Dates: start: 2022
  2. EXFORGE HCT [Suspect]
     Active Substance: AMLODIPINE BESYLATE\HYDROCHLOROTHIAZIDE\VALSARTAN
     Dosage: 1 DOSAGE FORM, QD
     Route: 048
     Dates: start: 20231120
  3. EXFORGE HCT [Suspect]
     Active Substance: AMLODIPINE BESYLATE\HYDROCHLOROTHIAZIDE\VALSARTAN
     Dosage: 0.5 DOSAGE FORM, BID, ((10/320/ 25 MG)), IN THE MORNING AND NIGHTHE DID NOT REMEMBER THE STOP DATE
     Route: 048
     Dates: start: 2022
  4. NEXIUM [Concomitant]
     Active Substance: ESOMEPRAZOLE MAGNESIUM
     Indication: Gastrooesophageal reflux disease
     Dosage: 1 DOSAGE FORM, QD
     Route: 048
     Dates: start: 20231121
  5. NEXIUM [Concomitant]
     Active Substance: ESOMEPRAZOLE MAGNESIUM
     Indication: Dyspepsia
  6. OMEPRAZOLE [Concomitant]
     Active Substance: OMEPRAZOLE
     Indication: Gastrooesophageal reflux disease
     Dosage: 1 DOSAGE FORM, QD, (STARTED MORE THAN 20 YEARS AGO)
     Route: 048
     Dates: end: 20231121
  7. OMEPRAZOLE [Concomitant]
     Active Substance: OMEPRAZOLE
     Indication: Dyspepsia
  8. RIOPAN [Concomitant]
     Indication: Gastrooesophageal reflux disease
     Dosage: 10 ML, TID
     Route: 048
     Dates: start: 202311
  9. RIOPAN [Concomitant]
     Indication: Dyspepsia
  10. CITICOLINE [Concomitant]
     Active Substance: CITICOLINE
     Indication: Product used for unknown indication
     Dosage: 500 MG
     Route: 048
  11. ZYLOPRIM [Concomitant]
     Active Substance: ALLOPURINOL
     Indication: Blood uric acid
     Dosage: 0.5 DOSAGE FORM, QD
     Route: 048
  12. ZYLOPRIM [Concomitant]
     Active Substance: ALLOPURINOL
     Indication: Renal disorder

REACTIONS (10)
  - Cerebral disorder [Unknown]
  - Influenza [Unknown]
  - Loss of consciousness [Unknown]
  - COVID-19 [Recovered/Resolved]
  - Wound [Recovered/Resolved]
  - Cough [Unknown]
  - Hypotension [Recovered/Resolved]
  - Fall [Recovered/Resolved]
  - Cerebral microinfarction [Unknown]
  - Off label use [Unknown]

NARRATIVE: CASE EVENT DATE: 20231118
